FAERS Safety Report 6193131-X (Version None)
Quarter: 2009Q2

REPORT INFORMATION
  Report Type: 
  Country: None (occurrence: None)
  Receive Date: 20090514
  Receipt Date: 20090514
  Transmission Date: 20091009
  Serious: No
  Sender: FDA-Public Use
  Company Number: None

PATIENT
  Age: 53 Year
  Sex: Male
  Weight: 76 kg

DRUGS (2)
  1. SIMVASTATIN [Suspect]
     Indication: HYPERLIPIDAEMIA
     Dosage: 80 MG AT BEDTIME PO
     Route: 048
     Dates: start: 20040520, end: 20090305
  2. NIACIN [Suspect]
     Indication: HYPERLIPIDAEMIA
     Dosage: 500 MG AT BEDTIME PO
     Route: 048
     Dates: start: 20061204, end: 20090305

REACTIONS (3)
  - MYOSITIS [None]
  - RENAL FAILURE ACUTE [None]
  - RHABDOMYOLYSIS [None]
